FAERS Safety Report 5957016-3 (Version None)
Quarter: 2008Q4

REPORT INFORMATION
  Report Type: 
  Country: None (occurrence: None)
  Receive Date: 20081118
  Receipt Date: 20080903
  Transmission Date: 20090506
  Serious: No
  Sender: FDA-Public Use
  Company Number: A0745693A

PATIENT
  Age: 67 Year
  Sex: Male

DRUGS (3)
  1. COREG CR [Suspect]
     Indication: ARRHYTHMIA
     Dosage: 40MG PER DAY
     Route: 048
     Dates: start: 20080601
  2. RYTHMOL [Suspect]
     Indication: ARRHYTHMIA
     Dosage: 325MG TWICE PER DAY
     Route: 048
     Dates: start: 20080801
  3. NO CONCURRENT MEDICATION [Concomitant]

REACTIONS (3)
  - COUGH [None]
  - FATIGUE [None]
  - POSTNASAL DRIP [None]
